FAERS Safety Report 10035888 (Version 1)
Quarter: 2014Q1

REPORT INFORMATION
  Report Type: Spontaneous
  Country: DE (occurrence: DE)
  Receive Date: 20140325
  Receipt Date: 20140325
  Transmission Date: 20141002
  Serious: Yes (Other)
  Sender: FDA-Public Use
  Company Number: DE-PFIZER INC-2014080355

PATIENT
  Age: 79 Year
  Sex: Male

DRUGS (2)
  1. DOXAZOSIN MESILATE [Suspect]
     Dosage: 4 MG, 2X/DAY
  2. MINOXIDIL [Concomitant]
     Dosage: 0.4 MG, UNK

REACTIONS (2)
  - Blood pressure increased [Unknown]
  - Diarrhoea [Unknown]
